FAERS Safety Report 6218201-9 (Version None)
Quarter: 2009Q2

REPORT INFORMATION
  Report Type: 
  Country: None (occurrence: None)
  Receive Date: 20090608
  Receipt Date: 20090512
  Transmission Date: 20091009
  Serious: Yes (Other)
  Sender: FDA-Public Use
  Company Number: GB-ROCHE-636312

PATIENT
  Age: 56 Year
  Sex: Female
  Weight: 54.3 kg

DRUGS (6)
  1. XELODA [Suspect]
     Route: 048
     Dates: start: 20090401
  2. DOMPERIDONE [Concomitant]
     Indication: NAUSEA
     Route: 048
  3. DOMPERIDONE [Concomitant]
     Route: 048
     Dates: start: 20090401
  4. MS CONTIN [Concomitant]
     Indication: PAIN
     Route: 048
  5. OMEPRAZOLE [Concomitant]
     Route: 048
  6. ORAMORPH SR [Concomitant]
     Indication: PAIN
     Route: 048

REACTIONS (4)
  - CELLULITIS [None]
  - MUCOSAL INFLAMMATION [None]
  - PAIN IN EXTREMITY [None]
  - SKIN DISORDER [None]
